FAERS Safety Report 5478535-2 (Version None)
Quarter: 2007Q4

REPORT INFORMATION
  Report Type: 
  Country: None (occurrence: None)
  Receive Date: 20071005
  Receipt Date: 20070925
  Transmission Date: 20080405
  Serious: Yes (Death, Hospitalization)
  Sender: FDA-Public Use
  Company Number: BR-SANOFI-SYNTHELABO-D01200705954

PATIENT
  Sex: Female
  Weight: 41.5 kg

DRUGS (8)
  1. OXALIPLATIN [Suspect]
     Route: 042
     Dates: start: 20070808, end: 20070808
  2. SR57746 OR PLACEBO [Suspect]
     Indication: NEUROLOGICAL SYMPTOM
     Route: 048
     Dates: start: 20070724, end: 20070818
  3. DEXAMETHASONE 0.5MG TAB [Concomitant]
     Dates: start: 20070724, end: 20070808
  4. ONDANSETRON [Concomitant]
     Dates: start: 20070724, end: 20070808
  5. ACETAMINOPHEN W/ CODEINE [Concomitant]
     Dates: start: 20070717
  6. HYDROCHLOROTHIAZIDE [Concomitant]
     Dates: start: 19700101
  7. LEUCOVORIN [Suspect]
     Route: 042
     Dates: start: 20070808, end: 20070808
  8. FLUOROURACIL [Suspect]
     Dosage: 400 MG/M?(504MG), IV BOLUS D1+D2 FOLLOWED BY 5-FU 2400 MG/M?(3024MG) OVER 46-HOUR CONTINUOUS IV
     Route: 042
     Dates: start: 20070808, end: 20070810

REACTIONS (1)
  - GENERAL PHYSICAL HEALTH DETERIORATION [None]
